FAERS Safety Report 9396172 (Version 1)
Quarter: 2013Q3

REPORT INFORMATION
  Report Type: Spontaneous
  Country: GB (occurrence: None)
  Receive Date: 20130708
  Receipt Date: 20130708
  Transmission Date: 20140515
  Serious: Yes (Hospitalization)
  Sender: FDA-Public Use
  Company Number: 1786451

PATIENT
  Age: 64 Year
  Sex: Female
  Weight: 35.38 kg

DRUGS (6)
  1. CARBOPLATIN [Suspect]
     Indication: OVARIAN CANCER
     Dosage: AUC 5, 1 WEEK??IV (NOT OTHERWISE SPECIFIED)
     Route: 042
     Dates: start: 20130524
  2. PACLITAXEL [Suspect]
     Indication: OVARIAN CANCER
     Dosage: / SQ. METER (1 WEEK)
     Dates: start: 20130524
  3. BEVACIZUMAB [Suspect]
     Indication: OVARIAN CANCER
     Dosage: (1 WEEK)
     Dates: start: 20130524
  4. DEXAMETHASONE [Concomitant]
  5. DOMPERIDONE [Concomitant]
  6. LANSOPRAZOLE [Concomitant]

REACTIONS (2)
  - Small intestinal perforation [None]
  - Metastases to lymph nodes [None]
